FAERS Safety Report 9506073 (Version 1)
Quarter: 2013Q1

REPORT INFORMATION
  Report Type: Spontaneous
  Country: US (occurrence: None)
  Receive Date: 20130305
  Receipt Date: 20130305
  Transmission Date: 20140127
  Serious: Yes (Other)
  Sender: FDA-Public Use
  Company Number: 163-21880-12022046

PATIENT
  Age: 82 Year
  Sex: Female
  Weight: 50.35 kg

DRUGS (12)
  1. REVLIMID [Suspect]
     Indication: PLASMA CELL MYELOMA
     Dosage: 15 MG, CAPSULE, X 21 DAYS, PO
     Dates: start: 20100824
  2. AVASTIN (BEVACIZUMAB) [Concomitant]
  3. CARDIZEM (DILTIAZEM HYDROCHLORIDE) [Concomitant]
  4. DIGOXIN (DIGOXIN) [Concomitant]
     Dosage: 15 MG, CAPSULE, X 21 DAYS, PO
  5. SENOKOT (SENNA FRUIT) [Concomitant]
  6. SODIUM BICARBONATE [Concomitant]
  7. SYNTHROID (LEVOTHYROXINE SODIUM) [Concomitant]
  8. VITAMIN D (ERGOCALCIFEROL) [Concomitant]
  9. ZOFRAN (ONDANSETRON HYDROCHLORIDE) [Concomitant]
  10. LEVAQUIN (LEVOFLOXACIN) [Concomitant]
  11. FLUCONAZOLE [Concomitant]
  12. ACYCLOVIR [Concomitant]

REACTIONS (2)
  - Pancytopenia [None]
  - Bone marrow failure [None]
